FAERS Safety Report 22635389 (Version 1)
Quarter: 2023Q2

REPORT INFORMATION
  Report Type: Report from Study
  Country: IT (occurrence: IT)
  Receive Date: 20230623
  Receipt Date: 20230623
  Transmission Date: 20230722
  Serious: Yes (Other)
  Sender: FDA-Public Use
  Company Number: IT-BAXTER-2021BAX026595

PATIENT
  Age: 57 Year
  Sex: Female

DRUGS (7)
  1. VINCRISTINE SULFATE [Suspect]
     Active Substance: VINCRISTINE SULFATE
     Dosage: UNK
  2. DOXORUBICIN HYDROCHLORIDE [Suspect]
     Active Substance: DOXORUBICIN HYDROCHLORIDE
     Dosage: UNK
  3. PREDNISONE [Suspect]
     Active Substance: PREDNISONE
     Indication: Product used for unknown indication
     Dosage: UNK
  4. CYCLOPHOSPHAMIDE [Suspect]
     Active Substance: CYCLOPHOSPHAMIDE
     Indication: Product used for unknown indication
     Dosage: UNK
  5. OBINUTUZUMAB [Suspect]
     Active Substance: OBINUTUZUMAB
     Indication: Follicular lymphoma
     Dosage: 1000 MG (D 1, 8, 15 C1, D 1 OF C 2-6 OR 2-8 THEN 1000 MG Q2 MONTHS 2 YRS OR DISEASE PROGRESSION
     Route: 042
     Dates: start: 20190809, end: 20200728
  6. OBINUTUZUMAB [Suspect]
     Active Substance: OBINUTUZUMAB
     Dosage: 1000 MG (D 1,8,15 C 1 AND D 1 C2-6 OR 2-8 THEN1000 MG Q2 MONTHS FOR 2 YRS OR DISEASE PROGRESSION
     Route: 042
     Dates: start: 20190809, end: 20200728
  7. BENDAMUSTINE HYDROCHLORIDE [Suspect]
     Active Substance: BENDAMUSTINE HYDROCHLORIDE
     Indication: Chemotherapy
     Dosage: UNK UNK, CYCLIC
     Route: 042

REACTIONS (5)
  - Hypogammaglobulinaemia [Recovering/Resolving]
  - Hypogammaglobulinaemia [Recovered/Resolved]
  - Hypogammaglobulinaemia [Not Recovered/Not Resolved]
  - Thrombocytopenia [Recovered/Resolved]
  - Diarrhoea [Recovered/Resolved]

NARRATIVE: CASE EVENT DATE: 20200131
